FAERS Safety Report 24279665 (Version 1)
Quarter: 2024Q3

REPORT INFORMATION
  Report Type: Spontaneous
  Country: US (occurrence: US)
  Receive Date: 20240904
  Receipt Date: 20240904
  Transmission Date: 20241016
  Serious: No
  Sender: NOVARTIS
  Company Number: US-002147023-NVSC2024US177126

PATIENT
  Sex: Male

DRUGS (6)
  1. MYFORTIC [Suspect]
     Active Substance: MYCOPHENOLATE SODIUM
     Indication: Product used for unknown indication
     Dosage: UNK
     Route: 065
     Dates: end: 2024
  2. CELLCEPT [Suspect]
     Active Substance: MYCOPHENOLATE MOFETIL
     Indication: Product used for unknown indication
     Dosage: UNK
     Route: 065
     Dates: end: 2024
  3. TYVASO [Suspect]
     Active Substance: TREPROSTINIL
     Indication: Pulmonary arterial hypertension
     Dosage: 16 UG, QID
     Route: 055
     Dates: start: 2024, end: 2024
  4. TYVASO [Suspect]
     Active Substance: TREPROSTINIL
     Dosage: 32 UG
     Route: 065
  5. TYVASO [Suspect]
     Active Substance: TREPROSTINIL
     Dosage: UNK
     Route: 065
     Dates: start: 202407
  6. TYVASO [Suspect]
     Active Substance: TREPROSTINIL
     Dosage: 48 UG, QID
     Route: 055
     Dates: start: 2024

REACTIONS (11)
  - Diarrhoea [Unknown]
  - Throat irritation [Unknown]
  - Epistaxis [Unknown]
  - Cough [Not Recovered/Not Resolved]
  - Dyspnoea [Not Recovered/Not Resolved]
  - Fatigue [Unknown]
  - Dyspnoea exertional [Unknown]
  - Oedema peripheral [Unknown]
  - Dizziness [Unknown]
  - Headache [Unknown]
  - Hypotension [Unknown]

NARRATIVE: CASE EVENT DATE: 20240101
